FAERS Safety Report 22144939 (Version 1)
Quarter: 2023Q1

REPORT INFORMATION
  Report Type: Spontaneous
  Country: RO (occurrence: None)
  Receive Date: 20230328
  Receipt Date: 20230328
  Transmission Date: 20230417
  Serious: Yes (Hospitalization, Other)
  Sender: FDA-Public Use
  Company Number: RO-MLMSERVICE-20230310-4157582-1

PATIENT
  Age: 73 Year
  Sex: Female

DRUGS (6)
  1. ACENOCOUMAROL [Interacting]
     Active Substance: ACENOCOUMAROL
     Indication: Anticoagulant therapy
     Dosage: ()
     Route: 048
  2. LEVOTHYROXINE [Concomitant]
     Active Substance: LEVOTHYROXINE
  3. CARVEDILOL [Concomitant]
     Active Substance: CARVEDILOL
  4. CANDESARTAN [Concomitant]
     Active Substance: CANDESARTAN
  5. CILASTATIN SODIUM\IMIPENEM [Interacting]
     Active Substance: CILASTATIN SODIUM\IMIPENEM
     Indication: Endocarditis enterococcal
     Dosage: DOSES ADJUSTED TO RENAL FUNCTION ()
  6. VANCOMYCIN [Interacting]
     Active Substance: VANCOMYCIN
     Indication: Endocarditis enterococcal
     Dosage: DOSES ADJUSTED TO RENAL FUNCTION ()

REACTIONS (5)
  - Anaemia [Recovered/Resolved]
  - Drug interaction [Recovered/Resolved]
  - Epistaxis [Recovered/Resolved]
  - Anticoagulation drug level above therapeutic [Recovered/Resolved]
  - Thrombocytopenia [Recovered/Resolved]
